FAERS Safety Report 5608462-9 (Version None)
Quarter: 2008Q1

REPORT INFORMATION
  Report Type: 
  Country: None (occurrence: None)
  Receive Date: 20080130
  Receipt Date: 20080122
  Transmission Date: 20080703
  Serious: Yes (Other)
  Sender: FDA-Public Use
  Company Number: IE-ABBOTT-07P-229-0430696-00

PATIENT
  Age: 30 Year
  Sex: Female

DRUGS (3)
  1. KLACID LA [Suspect]
     Indication: SINUSITIS
     Route: 048
     Dates: start: 20071129, end: 20071201
  2. VITAMIN CAP [Concomitant]
     Indication: DRUG USE FOR UNKNOWN INDICATION
  3. BEROCCA [Concomitant]
     Indication: DRUG USE FOR UNKNOWN INDICATION

REACTIONS (3)
  - ABNORMAL DREAMS [None]
  - DIZZINESS [None]
  - DRY MOUTH [None]
